FAERS Safety Report 11521896 (Version 1)
Quarter: 2015Q3

REPORT INFORMATION
  Report Type: Spontaneous
  Country: US (occurrence: US)
  Receive Date: 20150918
  Receipt Date: 20150918
  Transmission Date: 20151125
  Serious: Yes (Other)
  Sender: FDA-Public Use
  Company Number: US-PFIZER INC-2015306044

PATIENT
  Sex: Female

DRUGS (2)
  1. FELDENE [Suspect]
     Active Substance: PIROXICAM
     Indication: TRIGGER FINGER
     Dosage: 20 MG, UNK
     Dates: start: 2005
  2. FELDENE [Suspect]
     Active Substance: PIROXICAM
     Indication: ARTHRITIS

REACTIONS (3)
  - Incorrect drug administration duration [Unknown]
  - Hypoacusis [Unknown]
  - Transient ischaemic attack [Unknown]

NARRATIVE: CASE EVENT DATE: 201506
